FAERS Safety Report 6546039-1 (Version None)
Quarter: 2010Q1

REPORT INFORMATION
  Report Type: 
  Country: None (occurrence: None)
  Receive Date: 20100121
  Receipt Date: 20100121
  Transmission Date: 20100710
  Serious: Yes (Life-Threatening)
  Sender: FDA-Public Use
  Company Number: None

PATIENT
  Age: 63 Year
  Sex: Female
  Weight: 90.7194 kg

DRUGS (1)
  1. AZOR [Suspect]
     Dosage: 1 DAILY

REACTIONS (4)
  - DIARRHOEA [None]
  - DRY MOUTH [None]
  - PRODUCT ODOUR ABNORMAL [None]
  - VOMITING [None]
